FAERS Safety Report 7069506-3 (Version None)
Quarter: 2010Q4

REPORT INFORMATION
  Report Type: 
  Country: None (occurrence: None)
  Receive Date: 20101028
  Receipt Date: 20100409
  Transmission Date: 20110411
  Serious: No
  Sender: FDA-Public Use
  Company Number: US-WYE-H12358509

PATIENT
  Sex: Female
  Weight: 76.27 kg

DRUGS (10)
  1. CORDARONE [Suspect]
     Indication: ATRIAL FIBRILLATION
     Dosage: DOSE AND FREQUENCY NOT SPECIFIED
     Route: 065
  2. ASPIRIN [Concomitant]
  3. CALCIUM [Concomitant]
  4. METOPROLOL TARTRATE [Concomitant]
  5. FISH OIL, HYDROGENATED [Concomitant]
  6. DIGOXIN [Concomitant]
  7. FLEXERIL [Concomitant]
  8. DILTIAZEM [Concomitant]
  9. MULTAQ [Concomitant]
  10. ERGOCALCIFEROL [Concomitant]

REACTIONS (1)
  - HEPATIC FUNCTION ABNORMAL [None]
